FAERS Safety Report 7061270-7 (Version None)
Quarter: 2010Q4

REPORT INFORMATION
  Report Type: 
  Country: None (occurrence: None)
  Receive Date: 20101026
  Receipt Date: 20101019
  Transmission Date: 20110411
  Serious: No
  Sender: FDA-Public Use
  Company Number: US-PFIZER INC-2010133138

PATIENT
  Sex: Female

DRUGS (1)
  1. CHANTIX [Suspect]
     Dosage: 0.5 MG, UNK
     Dates: start: 20101013

REACTIONS (4)
  - ABNORMAL DREAMS [None]
  - DECREASED APPETITE [None]
  - ENERGY INCREASED [None]
  - FATIGUE [None]
